FAERS Safety Report 9677316 (Version 2)
Quarter: 2013Q4

REPORT INFORMATION
  Report Type: Spontaneous
  Country: US (occurrence: US)
  Receive Date: 20131108
  Receipt Date: 20131217
  Transmission Date: 20140711
  Serious: No
  Sender: FDA-Public Use
  Company Number: US-PFIZER INC-2013318440

PATIENT
  Age: 39 Year
  Sex: Male
  Weight: 92.06 kg

DRUGS (4)
  1. DILANTIN [Suspect]
     Indication: CONVULSION
     Dosage: 300 MG, 2X/DAY (THREE 100MG TABLETS TWO TIMES A DAY)
     Dates: start: 1992
  2. CELEBREX [Interacting]
     Indication: OSTEOARTHRITIS
     Dosage: UNK
     Dates: start: 201304, end: 2013
  3. LAMICTAL [Suspect]
     Indication: CONVULSION
     Dosage: UNK
  4. BC HEADACHE [Interacting]
     Indication: HEADACHE
     Dosage: UNK
     Dates: start: 2013

REACTIONS (7)
  - Osteoarthritis [Unknown]
  - Headache [Unknown]
  - Malaise [Unknown]
  - Feeling abnormal [Unknown]
  - Memory impairment [Unknown]
  - Asthenia [Recovered/Resolved]
  - Drug interaction [Unknown]
